FAERS Safety Report 17745360 (Version 1)
Quarter: 2020Q2

REPORT INFORMATION
  Report Type: Report from Study
  Country: MX (occurrence: MX)
  Receive Date: 20200505
  Receipt Date: 20200505
  Transmission Date: 20200714
  Serious: Yes (Other)
  Sender: FDA-Public Use
  Company Number: MX-TEVA-2020-MX-1231119

PATIENT
  Age: 12 Year
  Sex: Female

DRUGS (11)
  1. METHOTREXATE. [Suspect]
     Active Substance: METHOTREXATE
     Indication: ACUTE LYMPHOCYTIC LEUKAEMIA
     Dosage: TRIPLE INTRATHECAL CHEMOTHERAPY ON DAYS 1, 15 AND 28 (TWO TO FOUR DOSES).
     Route: 037
  2. L-ASPARAGINASE [Suspect]
     Active Substance: ASPARAGINASE
     Indication: ACUTE LYMPHOCYTIC LEUKAEMIA
     Dosage: 6000U/M2 (NINE DOSES)
     Route: 030
  3. TRIMETHOPRIM/SULFAMETHOXAZOLE [Concomitant]
     Active Substance: SULFAMETHOXAZOLE\TRIMETHOPRIM
     Indication: PROPHYLAXIS
     Route: 065
  4. CIPROFLOXACIN. [Concomitant]
     Active Substance: CIPROFLOXACIN
     Indication: PROPHYLAXIS
     Route: 065
  5. DEXAMETHASONE. [Suspect]
     Active Substance: DEXAMETHASONE
     Indication: ACUTE LYMPHOCYTIC LEUKAEMIA
     Dosage: SCHEDULED FOR 21 DAYS.
     Route: 048
  6. HYDROCORTISONE. [Suspect]
     Active Substance: HYDROCORTISONE
     Indication: ACUTE LYMPHOCYTIC LEUKAEMIA
     Dosage: TRIPLE INTRATHECAL CHEMOTHERAPY ON DAYS 1, 15 AND 28 (TWO TO FOUR DOSES).
     Route: 037
  7. CYTARABINE. [Suspect]
     Active Substance: CYTARABINE
     Indication: ACUTE LYMPHOCYTIC LEUKAEMIA
     Dosage: TRIPLE INTRATHECAL CHEMOTHERAPY ON DAYS 1, 15 AND 28 (TWO TO FOUR DOSES).
     Route: 037
  8. ACYCLOVIR. [Concomitant]
     Active Substance: ACYCLOVIR
     Indication: PROPHYLAXIS
     Route: 065
  9. ITRACONAZOLE. [Concomitant]
     Active Substance: ITRACONAZOLE
     Indication: PROPHYLAXIS
     Route: 065
  10. BORTEZOMIB. [Suspect]
     Active Substance: BORTEZOMIB
     Indication: ACUTE LYMPHOCYTIC LEUKAEMIA
     Dosage: ON DAYS 1, 4, 8 AND 11
     Route: 058
  11. VINCRISTINE [Suspect]
     Active Substance: VINCRISTINE
     Indication: ACUTE LYMPHOCYTIC LEUKAEMIA
     Dosage: ON DAYS 1, 8, 15 AND 22
     Route: 042

REACTIONS (1)
  - Neuropathy peripheral [Unknown]
